FAERS Safety Report 6096251-3 (Version None)
Quarter: 2009Q1

REPORT INFORMATION
  Report Type: 
  Country: None (occurrence: None)
  Receive Date: 20090227
  Receipt Date: 20081021
  Transmission Date: 20090719
  Serious: No
  Sender: FDA-Public Use
  Company Number: A0752778A

PATIENT
  Sex: Female

DRUGS (4)
  1. LAMICTAL [Suspect]
     Indication: MOOD SWINGS
     Dosage: 200MG AT NIGHT
     Route: 048
     Dates: start: 20080901
  2. PREVACID [Concomitant]
  3. VYVANSE [Concomitant]
  4. FLUOXETINE [Concomitant]

REACTIONS (1)
  - INSOMNIA [None]
